FAERS Safety Report 18004083 (Version 1)
Quarter: 2020Q3

REPORT INFORMATION
  Report Type: Spontaneous
  Country: US (occurrence: US)
  Receive Date: 20200709
  Receipt Date: 20200709
  Transmission Date: 20201103
  Serious: No
  Sender: FDA-Public Use
  Company Number: US-ASTELLAS-2020US010782

PATIENT
  Sex: Male

DRUGS (2)
  1. MYRBETRIQ [Suspect]
     Active Substance: MIRABEGRON
     Indication: BLADDER DISORDER
  2. MYRBETRIQ [Suspect]
     Active Substance: MIRABEGRON
     Indication: NEOPLASM MALIGNANT
     Route: 065

REACTIONS (1)
  - Product use in unapproved indication [Unknown]
